FAERS Safety Report 21267986 (Version 1)
Quarter: 2022Q3

REPORT INFORMATION
  Report Type: Spontaneous
  Country: JP (occurrence: JP)
  Receive Date: 20220829
  Receipt Date: 20220829
  Transmission Date: 20221027
  Serious: Yes (Death, Hospitalization)
  Sender: FDA-Public Use
  Company Number: JP-DSJP-DSJ-2022-130754

PATIENT
  Age: 79 Year
  Sex: Male
  Weight: 60.3 kg

DRUGS (8)
  1. OLMESARTAN MEDOXOMIL [Suspect]
     Active Substance: OLMESARTAN MEDOXOMIL
     Indication: Product used for unknown indication
     Dosage: 10MG/DAY
     Route: 048
  2. FEBUXOSTAT [Concomitant]
     Active Substance: FEBUXOSTAT
     Dosage: 10MG/DAY
     Route: 048
  3. FEXOFENADINE [Concomitant]
     Active Substance: FEXOFENADINE HYDROCHLORIDE
     Dosage: 60MG/DAY
     Route: 048
  4. SPHERICAL ADSORPTIVE CARBON [Concomitant]
     Dosage: 6G/DAY
     Route: 048
  5. FUROSEMIDE [Concomitant]
     Active Substance: FUROSEMIDE
     Dosage: 20MG/DAY
     Route: 048
  6. SODIUM BICARBONATE [Concomitant]
     Active Substance: SODIUM BICARBONATE
     Dosage: 3G/DAY
     Route: 048
  7. CILNIDIPINE [Concomitant]
     Active Substance: CILNIDIPINE
     Dosage: 10MG/DAY
     Route: 048
  8. ALFACALCIDOL [Concomitant]
     Active Substance: ALFACALCIDOL
     Dosage: 0.25UG/DAY
     Route: 048

REACTIONS (1)
  - Eosinophilic pneumonia [Fatal]
